FAERS Safety Report 5217373-2 (Version None)
Quarter: 2007Q1

REPORT INFORMATION
  Report Type: 
  Country: None (occurrence: None)
  Receive Date: 20070124
  Receipt Date: 20060123
  Transmission Date: 20070707
  Serious: No
  Sender: FDA-Public Use
  Company Number: US-GLAXOSMITHKLINE-A0590497A

PATIENT
  Age: 62 Year
  Sex: Female

DRUGS (2)
  1. PAXIL CR [Suspect]
     Dosage: 12.5MG PER DAY
     Route: 048
     Dates: start: 20051201
  2. PREVACID [Concomitant]

REACTIONS (8)
  - ANXIETY [None]
  - COUGH [None]
  - DRY MOUTH [None]
  - FATIGUE [None]
  - GLOSSODYNIA [None]
  - HEADACHE [None]
  - SOMNOLENCE [None]
  - STOMACH DISCOMFORT [None]
